FAERS Safety Report 7629411-8 (Version None)
Quarter: 2011Q3

REPORT INFORMATION
  Report Type: 
  Country: None (occurrence: None)
  Receive Date: 20110701
  Receipt Date: 20110321
  Transmission Date: 20111222
  Serious: Yes (Hospitalization)
  Sender: FDA-Public Use
  Company Number: 7049111

PATIENT
  Age: 53 Year
  Sex: Female
  Weight: 64 kg

DRUGS (16)
  1. SPIRIVA [Concomitant]
  2. LISINOPRIL [Concomitant]
  3. RESTORIL [Concomitant]
  4. DANTROLENE SODIUM [Concomitant]
  5. PAXIL [Concomitant]
  6. ALBUTEROL INHALER (SALBUTAMOL) [Concomitant]
  7. REBIF [Suspect]
     Indication: MULTIPLE SCLEROSIS
     Dosage: 44 MCG, 3 IN 1 WK, SUBCUTANEOUS
     Route: 058
     Dates: start: 20101220
  8. EXTAVIA (ALL OTHER THERAPEUTIC PRODUCTS) [Concomitant]
  9. LYRICA [Concomitant]
  10. PEPCID [Concomitant]
  11. TRAMADOL HCL [Concomitant]
  12. PHENERGAN [Concomitant]
  13. BETA BLOCKER (BETA BLOCKING AGENTS) [Concomitant]
  14. ADVAIR DISKUS 100/50 [Concomitant]
  15. UNSPECIFIED PAIN MEDICATION (ALL OTHER THERAPEUTIC PRODUCTS) [Concomitant]
  16. MOBIC [Concomitant]

REACTIONS (5)
  - SOMNOLENCE [None]
  - MULTIPLE SCLEROSIS RELAPSE [None]
  - FEMUR FRACTURE [None]
  - ANKLE FRACTURE [None]
  - FALL [None]
